FAERS Safety Report 10045961 (Version 2)
Quarter: 2014Q1

REPORT INFORMATION
  Report Type: Spontaneous
  Country: US (occurrence: US)
  Receive Date: 20140330
  Receipt Date: 20140330
  Transmission Date: 20141002
  Serious: Yes (Other)
  Sender: FDA-Public Use
  Company Number: US-GE HEALTHCARE MEDICAL DIAGNOSTICS-OSCN-PR-0806S-0365

PATIENT
  Age: 43 Year
  Sex: Male

DRUGS (21)
  1. OMNISCAN [Suspect]
     Indication: VENOUS OCCLUSION
     Dates: start: 20020304, end: 20020304
  2. LISINOPRIL [Concomitant]
  3. EPOGEN [Concomitant]
  4. PROCRIT [Concomitant]
  5. NIFEREX [Concomitant]
  6. INFED [Concomitant]
  7. FERRLECIT [Concomitant]
  8. PHOSLO [Concomitant]
  9. RENAGEL [Concomitant]
  10. COZAAR [Concomitant]
  11. CELLCEPT [Concomitant]
  12. SIMULECT [Concomitant]
  13. THYMOGLOBULIN [Concomitant]
  14. ORTHOCLONE [Concomitant]
  15. SOLU-MEDROL [Concomitant]
  16. SOLU-CORTEF [Concomitant]
  17. PROGRAF [Concomitant]
  18. COLCHICINE [Concomitant]
  19. PREDNISONE [Concomitant]
  20. METHYLPREDNISOLONE [Concomitant]
  21. BELATACEPT [Concomitant]

REACTIONS (1)
  - Nephrogenic systemic fibrosis [Not Recovered/Not Resolved]
